FAERS Safety Report 23706359 (Version 1)
Quarter: 2024Q2

REPORT INFORMATION
  Report Type: Spontaneous
  Country: US (occurrence: US)
  Receive Date: 20240404
  Receipt Date: 20240404
  Transmission Date: 20240715
  Serious: Yes (Other)
  Sender: FDA-Public Use
  Company Number: US-BRISTOL-MYERS SQUIBB COMPANY-2024-050441

PATIENT
  Age: 73 Year
  Sex: Male
  Weight: 81.19 kg

DRUGS (2)
  1. REVLIMID [Suspect]
     Active Substance: LENALIDOMIDE
     Indication: Plasma cell myeloma
     Route: 048
     Dates: start: 202109
  2. REVLIMID [Suspect]
     Active Substance: LENALIDOMIDE
     Dosage: DOSE : 15 MG;     FREQ : ONCE DAILY X 21 DAYS ON, 7 DAYS OFF
     Route: 048
     Dates: start: 202204

REACTIONS (6)
  - Diabetes mellitus [Unknown]
  - Dyspepsia [Unknown]
  - Hypothalamo-pituitary disorder [Unknown]
  - Visual impairment [Unknown]
  - Hernia [Unknown]
  - Thirst decreased [Unknown]
